FAERS Safety Report 8344759-X (Version None)
Quarter: 2012Q2

REPORT INFORMATION
  Report Type: 
  Country: None (occurrence: None)
  Receive Date: 20120508
  Receipt Date: 20120502
  Transmission Date: 20120825
  Serious: Yes (Death, Other)
  Sender: FDA-Public Use
  Company Number: GR-JNJFOC-20120504115

PATIENT

DRUGS (3)
  1. VALACYCLOVIR HYDROCHLORIDE [Suspect]
     Indication: ANTIVIRAL TREATMENT
     Route: 065
  2. ACYCLOVIR [Suspect]
     Indication: ANTIVIRAL TREATMENT
     Route: 065
  3. SPORANOX [Suspect]
     Indication: ANTIFUNGAL PROPHYLAXIS
     Route: 065

REACTIONS (3)
  - ENCEPHALITIS FUNGAL [None]
  - DEATH [None]
  - ENCEPHALITIS VIRAL [None]
